FAERS Safety Report 19835228 (Version 1)
Quarter: 2021Q3

REPORT INFORMATION
  Report Type: Spontaneous
  Country: CN (occurrence: CN)
  Receive Date: 20210914
  Receipt Date: 20210914
  Transmission Date: 20211014
  Serious: Yes (Death)
  Sender: FDA-Public Use
  Company Number: CN-ASTRAZENECA-2021A599942

PATIENT
  Age: 47 Year
  Sex: Female
  Weight: 62.5 kg

DRUGS (6)
  1. GEFITINIB. [Concomitant]
     Active Substance: GEFITINIB
     Indication: LUNG ADENOCARCINOMA
  2. OSIMERTINIB. [Suspect]
     Active Substance: OSIMERTINIB
     Indication: LUNG NEOPLASM MALIGNANT
     Route: 048
  3. BEVACIZUMAB. [Concomitant]
     Active Substance: BEVACIZUMAB
  4. CATEQUENTINIB. [Suspect]
     Active Substance: CATEQUENTINIB
     Route: 065
  5. OSIMERTINIB. [Suspect]
     Active Substance: OSIMERTINIB
     Indication: LUNG NEOPLASM MALIGNANT
     Route: 048
  6. CISPLATIN\PEMETREXED [Concomitant]
     Active Substance: CISPLATIN\PEMETREXED
     Indication: LUNG ADENOCARCINOMA

REACTIONS (3)
  - Intentional dose omission [Unknown]
  - Death [Fatal]
  - Diarrhoea [Not Recovered/Not Resolved]
